FAERS Safety Report 5391218-2 (Version None)
Quarter: 2007Q3

REPORT INFORMATION
  Report Type: 
  Country: None (occurrence: None)
  Receive Date: 20070717
  Receipt Date: 20070710
  Transmission Date: 20080115
  Serious: Yes (Hospitalization)
  Sender: FDA-Public Use
  Company Number: 163-20785-07040709

PATIENT
  Age: 64 Year
  Sex: Male

DRUGS (2)
  1. THALOMID [Suspect]
     Indication: MULTIPLE MYELOMA
     Dosage: 50 MG; 100 MG, 1 IN 1 D, ORAL
     Route: 048
     Dates: start: 20070305, end: 20070401
  2. THALOMID [Suspect]
     Indication: MULTIPLE MYELOMA
     Dosage: 50 MG; 100 MG, 1 IN 1 D, ORAL
     Route: 048
     Dates: start: 20070413

REACTIONS (2)
  - INTESTINAL OBSTRUCTION [None]
  - KIDNEY INFECTION [None]
